FAERS Safety Report 7180468-0 (Version None)
Quarter: 2010Q4

REPORT INFORMATION
  Report Type: 
  Country: None (occurrence: None)
  Receive Date: 20101221
  Receipt Date: 20101213
  Transmission Date: 20110411
  Serious: Yes (Other)
  Sender: FDA-Public Use
  Company Number: US-ABBOTT-10P-163-0689502-00

PATIENT
  Sex: Female
  Weight: 109.41 kg

DRUGS (9)
  1. LUPRON DEPOT [Suspect]
     Indication: UTERINE LEIOMYOMA
     Dosage: 1 INJ. EVERY MONTH, TOOK 3 INJ.
     Route: 030
     Dates: start: 20100907, end: 20101105
  2. LUPRON DEPOT [Suspect]
     Indication: MENORRHAGIA
  3. IRON [Concomitant]
     Indication: IRON DEFICIENCY
  4. IRON [Concomitant]
     Indication: HAEMORRHAGE
  5. LEVOTHYROXINE [Concomitant]
     Indication: HYPOTHYROIDISM
  6. VITAMINS [Concomitant]
     Indication: PRODUCT USED FOR UNKNOWN INDICATION
  7. TRANEXAMIC ACID [Concomitant]
     Indication: COAGULOPATHY
  8. TRANEXAMIC ACID [Concomitant]
  9. MICRONOR [Concomitant]
     Indication: CONTRACEPTION

REACTIONS (2)
  - HAEMOGLOBIN DECREASED [None]
  - VAGINAL HAEMORRHAGE [None]
